FAERS Safety Report 4689158-7 (Version None)
Quarter: 2005Q2

REPORT INFORMATION
  Report Type: 
  Country: None (occurrence: None)
  Receive Date: 20050613
  Receipt Date: 20050415
  Transmission Date: 20051028
  Serious: Yes (Death)
  Sender: FDA-Public Use
  Company Number: 2005UW05916

PATIENT
  Sex: Male

DRUGS (3)
  1. IRESSA [Suspect]
     Indication: LUNG NEOPLASM MALIGNANT
     Route: 048
     Dates: start: 20041101, end: 20050104
  2. DARVOCET [Concomitant]
     Indication: PAIN
  3. LOVENOX [Concomitant]
     Indication: DEEP VEIN THROMBOSIS
     Route: 058
     Dates: start: 20050101

REACTIONS (4)
  - ACNE [None]
  - BLISTER [None]
  - DIARRHOEA [None]
  - LUNG NEOPLASM MALIGNANT [None]
